FAERS Safety Report 15277622 (Version 1)
Quarter: 2018Q3

REPORT INFORMATION
  Report Type: Spontaneous
  Country: US (occurrence: US)
  Receive Date: 20180814
  Receipt Date: 20180814
  Transmission Date: 20181010
  Serious: No
  Sender: FDA-Public Use
  Company Number: US-PURDUE-USA-2018-0143853

PATIENT
  Age: 65 Year
  Sex: Female

DRUGS (1)
  1. THEOPHYLLINE ER TABLET (040086, 087571 RHODES) [Suspect]
     Active Substance: THEOPHYLLINE ANHYDROUS
     Indication: PRODUCT USED FOR UNKNOWN INDICATION
     Dosage: 400 MG, DAILY
     Route: 048
     Dates: start: 201805

REACTIONS (3)
  - Product use complaint [Not Recovered/Not Resolved]
  - Aerophagia [Not Recovered/Not Resolved]
  - Eructation [Not Recovered/Not Resolved]

NARRATIVE: CASE EVENT DATE: 201805
